FAERS Safety Report 6959676-7 (Version None)
Quarter: 2010Q3

REPORT INFORMATION
  Report Type: 
  Country: None (occurrence: None)
  Receive Date: 20100831
  Receipt Date: 20100823
  Transmission Date: 20110219
  Serious: Yes (Hospitalization)
  Sender: FDA-Public Use
  Company Number: FR-ABBOTT-10P-056-0665827-00

PATIENT
  Sex: Male

DRUGS (3)
  1. NORVIR [Suspect]
     Indication: HIV INFECTION
     Route: 048
     Dates: start: 20100621, end: 20100630
  2. PREZISTA [Suspect]
     Indication: HIV INFECTION
     Dosage: 800 MG ONCE DAILY
     Route: 048
     Dates: start: 20100621, end: 20100630
  3. TRUVADA [Suspect]
     Indication: HIV INFECTION
     Route: 048
     Dates: start: 20100621, end: 20100630

REACTIONS (3)
  - HEPATIC FAILURE [None]
  - HEPATITIS [None]
  - SYPHILIS [None]
